FAERS Safety Report 4636337-0 (Version None)
Quarter: 2005Q2

REPORT INFORMATION
  Report Type: 
  Country: None (occurrence: None)
  Receive Date: 20050415
  Receipt Date: 20041116
  Transmission Date: 20051028
  Serious: Yes (Hospitalization, Other)
  Sender: FDA-Public Use
  Company Number: US-BRISTOL-MYERS SQUIBB COMPANY-12767018

PATIENT
  Age: 78 Year
  Sex: Female
  Weight: 76 kg

DRUGS (10)
  1. CARBOPLATIN [Suspect]
     Indication: ENDOMETRIAL CANCER
     Dosage: BOTH REACTIONS OCCURRED AFTER FIRST 10 CC'S
     Route: 042
     Dates: start: 20041025, end: 20041025
  2. TAXOL [Concomitant]
     Indication: ENDOMETRIAL CANCER
     Route: 042
     Dates: start: 20041025, end: 20041025
  3. DECADRON [Concomitant]
     Indication: PREMEDICATION
     Route: 042
  4. KYTRIL [Concomitant]
     Indication: PREMEDICATION
     Route: 042
  5. BENADRYL [Concomitant]
     Indication: PREMEDICATION
     Route: 042
  6. TAGAMET [Concomitant]
     Indication: PREMEDICATION
     Route: 042
  7. TOPROL-XL [Concomitant]
  8. EVISTA [Concomitant]
  9. SYNTHROID [Concomitant]
  10. XANAX [Concomitant]

REACTIONS (6)
  - BLOOD PRESSURE IMMEASURABLE [None]
  - COUGH [None]
  - DYSPNOEA [None]
  - ERYTHEMA [None]
  - PNEUMONIA [None]
  - TACHYCARDIA [None]
